FAERS Safety Report 9296260 (Version 5)
Quarter: 2013Q3

REPORT INFORMATION
  Report Type: Report from Study
  Country: US (occurrence: US)
  Receive Date: 20130517
  Receipt Date: 20130726
  Transmission Date: 20140515
  Serious: Yes (Death)
  Sender: FDA-Public Use
  Company Number: US-GLAXOSMITHKLINE-Z0019605A

PATIENT
  Age: 66 Year
  Sex: Male
  Weight: 81 kg

DRUGS (17)
  1. GSK573719 [Suspect]
     Indication: CHRONIC OBSTRUCTIVE PULMONARY DISEASE
     Dosage: 125MCG PER DAY
     Route: 055
     Dates: start: 20130318, end: 20130425
  2. FLUTICASONE PROPIONATE + SALMETEROL XINAFOATE [Suspect]
     Indication: CHRONIC OBSTRUCTIVE PULMONARY DISEASE
     Dosage: 1PUFF TWICE PER DAY
     Route: 055
     Dates: start: 20130318, end: 20130425
  3. FLUTICASONE PROPIONATE + SALMETEROL XINAFOATE [Suspect]
     Indication: CHRONIC OBSTRUCTIVE PULMONARY DISEASE
     Dosage: 1PUFF TWICE PER DAY
     Route: 055
     Dates: start: 20130219, end: 20130317
  4. ASPIRIN [Concomitant]
     Indication: CORONARY ARTERY DISEASE
     Dosage: 81MG PER DAY
     Route: 048
     Dates: start: 20130219
  5. WARFARIN [Concomitant]
     Indication: CARDIAC VALVE DISEASE
     Dosage: 2MG PER DAY
     Route: 048
     Dates: start: 199504
  6. METOPROLOL TARTRATE [Concomitant]
     Indication: HYPERTENSION
     Dosage: 12.5MG TWICE PER DAY
     Route: 048
     Dates: start: 2008
  7. TESTOSTERONE CYPIONATE [Concomitant]
     Indication: BLOOD TESTOSTERONE DECREASED
     Dosage: 200MG EVERY TWO WEEKS
     Route: 030
     Dates: start: 201209
  8. AMILORIDE + HYDROCHLOROTHIAZIDE [Concomitant]
     Indication: PULMONARY OEDEMA
     Dosage: 5MG PER DAY
     Route: 048
     Dates: start: 2008
  9. OMEPRAZOLE [Concomitant]
     Indication: GASTROOESOPHAGEAL REFLUX DISEASE
     Dosage: 20MG TWICE PER DAY
     Route: 048
     Dates: start: 2008
  10. LEVOTHYROXINE SODIUM [Concomitant]
     Indication: HYPOTHYROIDISM
     Dosage: 175MCG PER DAY
     Route: 048
     Dates: start: 2010
  11. SIMVASTATIN [Concomitant]
     Indication: BLOOD CHOLESTEROL INCREASED
     Dosage: 5MG PER DAY
     Route: 048
     Dates: start: 2008
  12. SILDENAFIL CITRATE [Concomitant]
     Indication: ERECTILE DYSFUNCTION
     Dosage: 50MG AS REQUIRED
     Route: 048
     Dates: start: 2000
  13. LISINOPRIL [Concomitant]
     Indication: HYPERTENSION
     Dosage: 5MG TWICE PER DAY
     Route: 048
     Dates: start: 2008
  14. CALCIUM [Concomitant]
     Indication: SUPPLEMENTATION THERAPY
     Dosage: 500MG TWICE PER DAY
     Route: 048
     Dates: start: 201301
  15. MULTIPLE VITAMIN [Concomitant]
     Indication: SUPPLEMENTATION THERAPY
     Dosage: 1TAB PER DAY
     Route: 048
     Dates: start: 2005
  16. FISH OIL [Concomitant]
     Indication: SUPPLEMENTATION THERAPY
     Dosage: 3000MG PER DAY
     Route: 048
     Dates: start: 2009
  17. FERROUS SULFATE [Concomitant]
     Indication: IRON DEFICIENCY
     Dosage: 325MG TWICE PER DAY
     Route: 048
     Dates: start: 20130221

REACTIONS (3)
  - Cerebrovascular accident [Fatal]
  - Cardio-respiratory arrest [Fatal]
  - Overdose [Fatal]
